FAERS Safety Report 16719955 (Version 1)
Quarter: 2019Q3

REPORT INFORMATION
  Report Type: Report from Study
  Country: US (occurrence: US)
  Receive Date: 20190820
  Receipt Date: 20190820
  Transmission Date: 20191005
  Serious: Yes (Other)
  Sender: FDA-Public Use
  Company Number: US-TESARO-2019-TSO02818-US

PATIENT
  Age: 80 Year
  Sex: Female

DRUGS (1)
  1. ZEJULA [Suspect]
     Active Substance: NIRAPARIB
     Indication: FALLOPIAN TUBE CANCER
     Dosage: 200 MG, QPM AFTER SUPPER
     Route: 048
     Dates: end: 20190809

REACTIONS (6)
  - Fear-related avoidance of activities [Unknown]
  - Quality of life decreased [Unknown]
  - Nausea [Not Recovered/Not Resolved]
  - Balance disorder [Unknown]
  - Loss of consciousness [Unknown]
  - Memory impairment [Unknown]

NARRATIVE: CASE EVENT DATE: 201908
